FAERS Safety Report 18374981 (Version 1)
Quarter: 2020Q4

REPORT INFORMATION
  Report Type: Spontaneous
  Country: IT (occurrence: IT)
  Receive Date: 20201013
  Receipt Date: 20201013
  Transmission Date: 20210114
  Serious: Yes (Hospitalization, Other)
  Sender: FDA-Public Use
  Company Number: IT-LUPIN PHARMACEUTICALS INC.-2020-07142

PATIENT
  Age: 81 Year
  Sex: Male

DRUGS (4)
  1. METHYLPREDNISOLONE. [Suspect]
     Active Substance: METHYLPREDNISOLONE
     Indication: DRUG REACTION WITH EOSINOPHILIA AND SYSTEMIC SYMPTOMS
     Dosage: 20 MILLIGRAM, TID, ADMINISTERED SYSTEMICALLY THREE TIMES A DAY FOR 3 DAYS AND THEN TAPERED OVER WEEK
     Route: 065
  2. METHYLPREDNISOLONE. [Suspect]
     Active Substance: METHYLPREDNISOLONE
     Dosage: UNK
     Route: 061
  3. ALBENDAZOLE. [Suspect]
     Active Substance: ALBENDAZOLE
     Indication: ACARODERMATITIS
     Dosage: 400 MILLIGRAM, QD
     Route: 065
  4. METHYLPREDNISOLONE. [Suspect]
     Active Substance: METHYLPREDNISOLONE
     Dosage: 7.5 MILLIGRAM, QD, ADMINISTERED SYSTEMICALLY
     Route: 065

REACTIONS (5)
  - Pneumonia [Unknown]
  - Pseudomonas infection [Unknown]
  - Condition aggravated [Recovered/Resolved]
  - Staphylococcal infection [Unknown]
  - Acarodermatitis [Recovered/Resolved]
